FAERS Safety Report 7037124-9 (Version None)
Quarter: 2010Q4

REPORT INFORMATION
  Report Type: 
  Country: None (occurrence: None)
  Receive Date: 20101011
  Receipt Date: 20100930
  Transmission Date: 20110411
  Serious: Yes (Hospitalization, Other)
  Sender: FDA-Public Use
  Company Number: CA-JNJFOC-20100908504

PATIENT
  Sex: Female
  Weight: 110 kg

DRUGS (6)
  1. REMICADE [Suspect]
     Indication: RHEUMATOID ARTHRITIS
     Route: 042
  2. REMICADE [Suspect]
     Indication: BEHCET'S SYNDROME
     Route: 042
  3. METHOTREXATE [Suspect]
     Indication: PRODUCT USED FOR UNKNOWN INDICATION
     Route: 050
  4. PREDNISONE [Concomitant]
  5. WARFARIN SODIUM [Concomitant]
     Dosage: ALTERNATE DAYS
  6. WARFARIN SODIUM [Concomitant]
     Dosage: ALTERNATE DAYS

REACTIONS (3)
  - BLINDNESS [None]
  - CELLULITIS [None]
  - DRUG INEFFECTIVE FOR UNAPPROVED INDICATION [None]
